FAERS Safety Report 25399195 (Version 2)
Quarter: 2025Q3

REPORT INFORMATION
  Report Type: Report from Study
  Country: US (occurrence: US)
  Receive Date: 20250605
  Receipt Date: 20250809
  Transmission Date: 20251021
  Serious: Yes (Other)
  Sender: ALEXION PHARMACEUTICALS
  Company Number: US-AstraZeneca-CH-00882842A

PATIENT
  Sex: Female

DRUGS (1)
  1. ULTOMIRIS [Suspect]
     Active Substance: RAVULIZUMAB-CWVZ
     Indication: Neuromyelitis optica spectrum disorder
     Route: 065

REACTIONS (8)
  - Dementia [Unknown]
  - Systemic lupus erythematosus [Unknown]
  - Psychotic disorder [Unknown]
  - Herpes zoster [Unknown]
  - Rash [Unknown]
  - Blood pressure abnormal [Recovering/Resolving]
  - Incontinence [Unknown]
  - Gait disturbance [Unknown]
